FAERS Safety Report 5150428-X (Version None)
Quarter: 2006Q4

REPORT INFORMATION
  Report Type: 
  Country: None (occurrence: None)
  Receive Date: 20061109
  Receipt Date: 20061109
  Transmission Date: 20070319
  Serious: No
  Sender: FDA-Public Use
  Company Number: None

PATIENT
  Sex: Male
  Weight: 98.8842 kg

DRUGS (2)
  1. CLOZAPINE [Suspect]
     Indication: SCHIZOAFFECTIVE DISORDER
     Dosage: 175 MG BID PO
     Route: 048
     Dates: start: 20061011, end: 20061018
  2. CLOZAPINE [Suspect]
     Indication: SCHIZOAFFECTIVE DISORDER
     Dosage: 100 MG 1 PM PO
     Route: 048
     Dates: start: 20061011, end: 20061018

REACTIONS (1)
  - NEUTROPHIL COUNT DECREASED [None]
